FAERS Safety Report 6327934-5 (Version None)
Quarter: 2009Q3

REPORT INFORMATION
  Report Type: 
  Country: None (occurrence: None)
  Receive Date: 20090824
  Receipt Date: 20090810
  Transmission Date: 20100115
  Serious: Yes (Other)
  Sender: FDA-Public Use
  Company Number: 2009AP003113

PATIENT
  Age: 64 Year
  Sex: Female

DRUGS (1)
  1. PRAVASTATIN SODIUM [Suspect]
     Dosage: 20 MG;QD ; 40 MG;QD

REACTIONS (2)
  - MYALGIA [None]
  - VITAMIN D DEFICIENCY [None]
